FAERS Safety Report 6005415-6 (Version None)
Quarter: 2008Q4

REPORT INFORMATION
  Report Type: 
  Country: None (occurrence: None)
  Receive Date: 20081217
  Receipt Date: 20081204
  Transmission Date: 20090506
  Serious: Yes (Death)
  Sender: FDA-Public Use
  Company Number: FR-CELGENEUS-056-20484-08120846

PATIENT
  Age: 36 Year
  Sex: Female

DRUGS (3)
  1. INNOHEP [Suspect]
     Indication: DRUG USE FOR UNKNOWN INDICATION
     Route: 058
  2. PACLITAXEL [Suspect]
     Indication: BREAST CANCER
     Route: 065
  3. BEVACIZUMAB [Suspect]
     Indication: BREAST CANCER
     Route: 065

REACTIONS (1)
  - HAEMOPTYSIS [None]
